FAERS Safety Report 8075654-1 (Version None)
Quarter: 2012Q1

REPORT INFORMATION
  Report Type: 
  Country: None (occurrence: None)
  Receive Date: 20120117
  Receipt Date: 20120113
  Transmission Date: 20120608
  Serious: Yes (Death)
  Sender: FDA-Public Use
  Company Number: 2012011431

PATIENT
  Sex: Female

DRUGS (1)
  1. PHOTOFRIN (PORFIMER SODIUM) INJECTION [Suspect]
     Indication: OESOPHAGEAL CARCINOMA
     Dosage: INTRAVENOUS
     Route: 042

REACTIONS (2)
  - OESOPHAGEAL FISTULA [None]
  - POST PROCEDURAL HAEMORRHAGE [None]
